FAERS Safety Report 10204210 (Version 5)
Quarter: 2014Q3

REPORT INFORMATION
  Report Type: Spontaneous
  Country: US (occurrence: US)
  Receive Date: 20140529
  Receipt Date: 20140905
  Transmission Date: 20150326
  Serious: Yes (Death, Other)
  Sender: FDA-Public Use
  Company Number: US-BAYER-2014-077698

PATIENT
  Age: 75 Year
  Sex: Male

DRUGS (12)
  1. XOFIGO [Suspect]
     Active Substance: RADIUM RA-223 DICHLORIDE
     Indication: PROSTATE CANCER STAGE IV
     Dosage: 50 KBQ/KG BODY WEIGHT
     Route: 042
     Dates: start: 20131220
  2. XOFIGO [Suspect]
     Active Substance: RADIUM RA-223 DICHLORIDE
     Indication: PROSTATE CANCER STAGE IV
     Dosage: 50 KBQ/KG BODY WEIGHT
     Route: 042
     Dates: start: 20140410
  3. XOFIGO [Suspect]
     Active Substance: RADIUM RA-223 DICHLORIDE
     Indication: PROSTATE CANCER STAGE IV
     Dosage: 50 KBQ/KG BODY WEIGHT
     Route: 042
     Dates: start: 20140117
  4. XOFIGO [Suspect]
     Active Substance: RADIUM RA-223 DICHLORIDE
     Indication: PROSTATE CANCER STAGE IV
     Dosage: 50 KBQ/KG BODY WEIGHT
     Route: 042
     Dates: start: 20140214
  5. XOFIGO [Suspect]
     Active Substance: RADIUM RA-223 DICHLORIDE
     Indication: PROSTATE CANCER STAGE IV
     Dosage: 50 KBQ/KG BODY WEIGHT
     Route: 042
     Dates: start: 20140313
  6. XOFIGO [Suspect]
     Active Substance: RADIUM RA-223 DICHLORIDE
     Indication: PROSTATE CANCER STAGE IV
     Dosage: 50 KBQ/KG BODY WEIGHT
     Route: 042
     Dates: start: 20140410
  7. XOFIGO [Suspect]
     Active Substance: RADIUM RA-223 DICHLORIDE
     Indication: PROSTATE CANCER STAGE IV
     Dosage: 50 KBQ/KG BODY WEIGHT
     Route: 042
     Dates: start: 20140117
  8. XOFIGO [Suspect]
     Active Substance: RADIUM RA-223 DICHLORIDE
     Indication: PROSTATE CANCER STAGE IV
     Dosage: 50 KBQ/KG BODY WEIGHT
     Route: 042
     Dates: start: 20140214
  9. XOFIGO [Suspect]
     Active Substance: RADIUM RA-223 DICHLORIDE
     Indication: PROSTATE CANCER STAGE IV
     Dosage: 50 KBQ/KG BODY WEIGHT
     Route: 042
     Dates: start: 20131220
  10. XOFIGO [Suspect]
     Active Substance: RADIUM RA-223 DICHLORIDE
     Indication: PROSTATE CANCER STAGE IV
     Dosage: 50 KBQ/KG BODY WEIGHT
     Route: 042
     Dates: start: 20140313
  11. XOFIGO [Suspect]
     Active Substance: RADIUM RA-223 DICHLORIDE
     Indication: PROSTATE CANCER STAGE IV
     Dosage: 50 KBQ/KG BODY WEIGHT
     Route: 042
     Dates: start: 20131122
  12. XOFIGO [Suspect]
     Active Substance: RADIUM RA-223 DICHLORIDE
     Indication: METASTASES TO BONE
     Dosage: 50 KBQ/KG BODY WEIGHT
     Route: 042
     Dates: start: 20131122

REACTIONS (8)
  - Prostatic specific antigen increased [None]
  - Asthenia [None]
  - Transfusion [None]
  - Weight decreased [None]
  - Weight decreased [None]
  - Prostate cancer [None]
  - Death [Fatal]
  - Anaemia [None]

NARRATIVE: CASE EVENT DATE: 20140214
